FAERS Safety Report 8406061-7 (Version None)
Quarter: 2012Q2

REPORT INFORMATION
  Report Type: 
  Country: None (occurrence: None)
  Receive Date: 20120529
  Receipt Date: 20010622
  Transmission Date: 20120825
  Serious: Yes (Other)
  Sender: FDA-Public Use
  Company Number: 15691-JPN-01-0001

PATIENT
  Age: 23 Year
  Sex: Male
  Weight: 60.8 kg

DRUGS (1)
  1. TOLVAPTAN (TOLVAPTAN) TABLET [Suspect]
     Dosage: 30 MG, QAM, ORAL
     Route: 048
     Dates: start: 20010622, end: 20010622

REACTIONS (9)
  - LOSS OF CONSCIOUSNESS [None]
  - BRADYCARDIA [None]
  - DIZZINESS POSTURAL [None]
  - LABILE BLOOD PRESSURE [None]
  - ATRIAL FIBRILLATION [None]
  - SINUS ARREST [None]
  - URINE OUTPUT INCREASED [None]
  - DEHYDRATION [None]
  - ORTHOSTATIC HYPOTENSION [None]
